FAERS Safety Report 8125503-8 (Version None)
Quarter: 2012Q1

REPORT INFORMATION
  Report Type: 
  Country: None (occurrence: None)
  Receive Date: 20120206
  Receipt Date: 20120124
  Transmission Date: 20120608
  Serious: Yes (Life-Threatening, Other)
  Sender: FDA-Public Use
  Company Number: AUR-APL-2012-00761

PATIENT
  Age: 43 Year
  Sex: Male
  Weight: 90 kg

DRUGS (5)
  1. ACETAMINOPHEN [Suspect]
     Indication: PRODUCT USED FOR UNKNOWN INDICATION
     Dosage: (2500 MG)
     Dates: start: 20120123, end: 20120123
  2. PANTOPRAZOLE [Suspect]
     Indication: SUICIDE ATTEMPT
     Dosage: (560 MG),
     Dates: start: 20120123, end: 20120123
  3. METOPROLOL TARTRATE [Suspect]
     Indication: PRODUCT USED FOR UNKNOWN INDICATION
     Dosage: (475 MG )
     Dates: start: 20120123, end: 20120123
  4. RAMIPRIL [Suspect]
     Indication: PRODUCT USED FOR UNKNOWN INDICATION
     Dosage: (90 MG)
     Dates: start: 20120123, end: 20120123
  5. ACETYLSALICYLIC ACID, CAFFEINE (ANACIN /00141001/) [Suspect]
     Indication: PRODUCT USED FOR UNKNOWN INDICATION
     Dosage: (1100 MG)
     Dates: start: 20120123, end: 20120123

REACTIONS (3)
  - MULTIPLE DRUG OVERDOSE INTENTIONAL [None]
  - SUICIDE ATTEMPT [None]
  - SUICIDAL IDEATION [None]
